FAERS Safety Report 9412413 (Version 1)
Quarter: 2013Q3

REPORT INFORMATION
  Report Type: Spontaneous
  Country: None (occurrence: None)
  Receive Date: 20130708
  Receipt Date: 20130708
  Transmission Date: 20140515
  Serious: Yes (Other)
  Sender: FDA-Public Use
  Company Number: AUR-APL-2009-00205

PATIENT
  Age: 86 Year
  Sex: Female

DRUGS (3)
  1. ALENDRONIC ACID [Suspect]
     Indication: PRODUCT USED FOR UNKNOWN INDICATION
  2. BISPHOSPHONATE [Suspect]
     Indication: PRODUCT USED FOR UNKNOWN INDICATION
  3. RISEDRONIC ACID [Suspect]
     Indication: PRODUCT USED FOR UNKNOWN INDICATION

REACTIONS (2)
  - Uveitis [None]
  - Cataract [None]
